FAERS Safety Report 15754068 (Version 2)
Quarter: 2019Q1

REPORT INFORMATION
  Report Type: Spontaneous
  Country: US (occurrence: US)
  Receive Date: 20181223
  Receipt Date: 20190207
  Transmission Date: 20190417
  Serious: Yes (Other)
  Sender: FDA-Public Use
  Company Number: US-009507513-1812USA008409

PATIENT
  Age: 20 Year
  Sex: Female
  Weight: 101.13 kg

DRUGS (3)
  1. NEXPLANON [Suspect]
     Active Substance: ETONOGESTREL
     Indication: CONTRACEPTION
     Dosage: 1 IMPLANT, ONCE EVERY THREE YEARS
     Route: 059
     Dates: start: 20180806, end: 20180910
  2. ELIDEL [Concomitant]
     Active Substance: PIMECROLIMUS
     Indication: PRODUCT USE IN UNAPPROVED INDICATION
     Dosage: UNK UNK, BID
     Route: 061
     Dates: start: 20180711
  3. IBUPROFEN. [Concomitant]
     Active Substance: IBUPROFEN
     Indication: PRODUCT USED FOR UNKNOWN INDICATION
     Dosage: 600 MILLIGRAM, TID
     Route: 048
     Dates: start: 20180711

REACTIONS (8)
  - Complication of device removal [Recovered/Resolved]
  - Menstruation irregular [Unknown]
  - Chlamydial infection [Unknown]
  - Weight increased [Not Recovered/Not Resolved]
  - Anxiety [Unknown]
  - Vulvovaginal pain [Recovered/Resolved]
  - Dysmenorrhoea [Unknown]
  - Anaemia [Recovered/Resolved]

NARRATIVE: CASE EVENT DATE: 2018
